FAERS Safety Report 15886045 (Version 1)
Quarter: 2019Q1

REPORT INFORMATION
  Report Type: Spontaneous
  Country: CZ (occurrence: CZ)
  Receive Date: 20190129
  Receipt Date: 20190129
  Transmission Date: 20190417
  Serious: Yes (Hospitalization)
  Sender: FDA-Public Use
  Company Number: CZ-MYLANLABS-2019M1007689

PATIENT
  Age: 71 Year
  Sex: Male

DRUGS (11)
  1. CARBIDOPA. [Concomitant]
     Active Substance: CARBIDOPA
     Indication: PARKINSON^S DISEASE
     Dosage: 50 MILLIGRAM
  2. CARBIDOPA. [Concomitant]
     Active Substance: CARBIDOPA
     Dosage: 1/2 TBL
  3. LEVODOPA [Concomitant]
     Active Substance: LEVODOPA
     Dosage: 100 MILLIGRAM, 6 DAY
  4. LEVODOPA [Concomitant]
     Active Substance: LEVODOPA
     Indication: PARKINSON^S DISEASE
     Dosage: 1/2 TBL
  5. RIVASTIGMINE. [Concomitant]
     Active Substance: RIVASTIGMINE
     Dosage: 6 MILLIGRAM, QD
  6. SERTRALINE [Concomitant]
     Active Substance: SERTRALINE HYDROCHLORIDE
     Dosage: 150 MILLIGRAM, QD
  7. OXAZEPAM. [Concomitant]
     Active Substance: OXAZEPAM
     Dosage: UNK
  8. ROPINIROLE. [Suspect]
     Active Substance: ROPINIROLE
     Indication: PARKINSON^S DISEASE
     Dosage: 16 MILLIGRAM, QD
  9. QUETIAPIN [Concomitant]
     Active Substance: QUETIAPINE
     Dosage: 100 MILLIGRAM, QD
  10. MIDAZOLAM [Concomitant]
     Active Substance: MIDAZOLAM HYDROCHLORIDE
     Dosage: 5 MILLIGRAM
  11. ENTACAPONE. [Concomitant]
     Active Substance: ENTACAPONE
     Indication: PARKINSON^S DISEASE
     Dosage: 200 MILLIGRAM, 6 DAY

REACTIONS (5)
  - Aggression [Recovered/Resolved]
  - Tension [Recovered/Resolved]
  - Paranoia [Recovered/Resolved]
  - Hallucination, visual [Recovered/Resolved]
  - Negative thoughts [Recovered/Resolved]
